FAERS Safety Report 25944295 (Version 1)
Quarter: 2025Q4

REPORT INFORMATION
  Report Type: Report from Study
  Country: PK (occurrence: PK)
  Receive Date: 20251021
  Receipt Date: 20251021
  Transmission Date: 20260118
  Serious: Yes (Other)
  Sender: ROCHE
  Company Number: PK-ROCHE-10000415221

PATIENT
  Age: 69 Year
  Sex: Female

DRUGS (1)
  1. AVASTIN [Suspect]
     Active Substance: BEVACIZUMAB
     Indication: Cervix carcinoma
     Route: 042
     Dates: start: 20241029

REACTIONS (2)
  - Metastases to abdominal cavity [Not Recovered/Not Resolved]
  - Metastases to gastrointestinal tract [Not Recovered/Not Resolved]

NARRATIVE: CASE EVENT DATE: 20250801
